FAERS Safety Report 7201790-5 (Version None)
Quarter: 2010Q4

REPORT INFORMATION
  Report Type: 
  Country: None (occurrence: None)
  Receive Date: 20101216
  Receipt Date: 20101116
  Transmission Date: 20110411
  Serious: Yes (Hospitalization)
  Sender: FDA-Public Use
  Company Number: 2010026920

PATIENT
  Sex: Female
  Weight: 43.0917 kg

DRUGS (2)
  1. VIVAGLOBIN [Suspect]
     Dosage: SEE IMAGE, SUBCUTANEOUS
     Route: 058
  2. VIVAGLOBIN [Suspect]

REACTIONS (3)
  - COLITIS [None]
  - DIARRHOEA [None]
  - KLEBSIELLA INFECTION [None]
